FAERS Safety Report 14529324 (Version 2)
Quarter: 2018Q1

REPORT INFORMATION
  Report Type: Spontaneous
  Country: IT (occurrence: IT)
  Receive Date: 20180214
  Receipt Date: 20180224
  Transmission Date: 20180509
  Serious: Yes (Other)
  Sender: FDA-Public Use
  Company Number: IT-ACCORD-063502

PATIENT
  Age: 74 Year
  Sex: Male
  Weight: 170 kg

DRUGS (2)
  1. CAPECITABINE. [Suspect]
     Active Substance: CAPECITABINE
     Indication: COLON CANCER
     Dosage: THERAPY END DATE: 15-JAN-2018 (162 DAYS)
     Route: 048
     Dates: start: 20170807
  2. OXALIPLATIN. [Suspect]
     Active Substance: OXALIPLATIN
     Indication: COLON CANCER
     Dosage: THERAPY END DATE: 15-JAN-2018 (162 DAYS)
     Route: 042
     Dates: start: 20170807

REACTIONS (4)
  - Vomiting [Recovering/Resolving]
  - Pyrexia [Recovering/Resolving]
  - Neurotoxicity [Not Recovered/Not Resolved]
  - Paraesthesia [Not Recovered/Not Resolved]

NARRATIVE: CASE EVENT DATE: 20171019
